FAERS Safety Report 26180248 (Version 2)
Quarter: 2025Q4

REPORT INFORMATION
  Report Type: Spontaneous
  Country: US (occurrence: US)
  Receive Date: 20251219
  Receipt Date: 20251224
  Transmission Date: 20260117
  Serious: Yes (Hospitalization, Other)
  Sender: ABBVIE
  Company Number: US-ABBVIE-6595075

PATIENT
  Age: 7 Year
  Sex: Female
  Weight: 37 kg

DRUGS (2)
  1. LUPRON [Suspect]
     Active Substance: LEUPROLIDE ACETATE
     Indication: Precocious puberty
     Dosage: FORM STRENGTH: 45 MILLIGRAM
     Route: 065
     Dates: start: 20250328
  2. LUPRON [Suspect]
     Active Substance: LEUPROLIDE ACETATE
     Route: 065
     Dates: start: 20251008

REACTIONS (12)
  - Weight bearing difficulty [Recovering/Resolving]
  - Injection site erythema [Not Recovered/Not Resolved]
  - Injection site pain [Recovering/Resolving]
  - Musculoskeletal disorder [Unknown]
  - Injection site discomfort [Unknown]
  - Myositis [Recovering/Resolving]
  - Pyomyositis [Unknown]
  - Injection site warmth [Unknown]
  - Injection site swelling [Not Recovered/Not Resolved]
  - Dysstasia [Recovering/Resolving]
  - Gait disturbance [Unknown]
  - Mobility decreased [Recovering/Resolving]

NARRATIVE: CASE EVENT DATE: 20251020
